FAERS Safety Report 8614896-0 (Version None)
Quarter: 2012Q3

REPORT INFORMATION
  Report Type: 
  Country: None (occurrence: None)
  Receive Date: 20120823
  Receipt Date: 20120720
  Transmission Date: 20120928
  Serious: No
  Sender: FDA-Public Use
  Company Number: US-BRISTOL-MYERS SQUIBB COMPANY-16793275

PATIENT
  Age: 60 Year

DRUGS (2)
  1. KOMBIGLYZE XR [Suspect]
     Dosage: 1 DF = 2.5/1000 MG
     Dates: start: 20120701, end: 20120701
  2. LANTUS [Concomitant]
     Dosage: 1 DOSAGE FORM = 20 UNITS

REACTIONS (1)
  - ABDOMINAL PAIN UPPER [None]
